FAERS Safety Report 9368577 (Version 1)
Quarter: 2013Q2

REPORT INFORMATION
  Report Type: Spontaneous
  Country: CN (occurrence: CN)
  Receive Date: 20130626
  Receipt Date: 20130626
  Transmission Date: 20140414
  Serious: Yes (Other)
  Sender: FDA-Public Use
  Company Number: CN-ABBOTT-13X-035-1109145-00

PATIENT
  Age: 32 Month
  Sex: Male

DRUGS (2)
  1. DEPAKINE [Suspect]
     Indication: EPILEPSY
     Route: 048
     Dates: start: 2010
  2. DEPAKINE [Suspect]
     Route: 048

REACTIONS (8)
  - Trismus [Unknown]
  - Epilepsy [Recovered/Resolved]
  - Product counterfeit [Unknown]
  - Convulsion [Unknown]
  - Vomiting [Unknown]
  - Urinary incontinence [Unknown]
  - Faecal incontinence [Unknown]
  - Emotional disorder [Unknown]
